FAERS Safety Report 9521077 (Version 1)
Quarter: 2013Q3

REPORT INFORMATION
  Report Type: Spontaneous
  Country: US (occurrence: US)
  Receive Date: 20130913
  Receipt Date: 20130913
  Transmission Date: 20140515
  Serious: Yes (Hospitalization)
  Sender: FDA-Public Use
  Company Number: US-009507513-1309USA003857

PATIENT
  Age: 53 Year
  Sex: Male
  Weight: 100 kg

DRUGS (13)
  1. SINEMET [Suspect]
     Indication: TREMOR
     Dosage: 2X100MG/25MG, DAILY
     Route: 048
     Dates: start: 19950101
  2. FLONASE [Concomitant]
     Indication: HYPERSENSITIVITY
     Dosage: 0.1 MG DAILY
     Route: 045
     Dates: start: 19820101
  3. FLOVENT [Concomitant]
     Indication: ASTHMA
     Dosage: 220 MCG DAILY, INHALATION
     Route: 055
     Dates: start: 19860101
  4. PRILOSEC [Concomitant]
     Indication: GASTROOESOPHAGEAL REFLUX DISEASE
     Dosage: 40 MG DAILY
     Route: 048
     Dates: start: 19880415
  5. ZANAFLEX [Concomitant]
     Indication: FIBROMYALGIA
     Dosage: 24 MG DAILY
     Route: 048
     Dates: start: 19950101
  6. ATORVASTATIN [Concomitant]
     Indication: BLOOD CHOLESTEROL INCREASED
     Dosage: 10 MG DAILY
     Route: 048
     Dates: start: 20010101
  7. CYMBALTA [Concomitant]
     Indication: FIBROMYALGIA
     Dosage: 120 MG DAILY
     Route: 048
     Dates: start: 20040601
  8. CYMBALTA [Concomitant]
     Indication: MAJOR DEPRESSION
  9. GABAPENTIN [Concomitant]
     Indication: FIBROMYALGIA
     Dosage: 2400 MG DAILY
     Route: 048
     Dates: start: 20050101
  10. GABAPENTIN [Concomitant]
     Indication: NEURALGIA
  11. GLUCOPHAGE [Concomitant]
     Dosage: 2000 MG DAILY
     Route: 048
     Dates: start: 20050101
  12. MIRAPEX [Concomitant]
     Dosage: 0.25 MG DAILY
     Route: 048
     Dates: start: 20050601
  13. AMARYL [Concomitant]
     Indication: TYPE 2 DIABETES MELLITUS
     Dosage: 4 MG DAILY
     Route: 048
     Dates: start: 20090101

REACTIONS (6)
  - Hernia repair [Recovered/Resolved]
  - Hernia [Unknown]
  - Appendicitis [Recovered/Resolved]
  - Pneumonia [Recovered/Resolved]
  - Back pain [Recovered/Resolved]
  - Erosive oesophagitis [Recovered/Resolved]
